FAERS Safety Report 18796440 (Version 4)
Quarter: 2021Q1

REPORT INFORMATION
  Report Type: Report from Study
  Country: EG (occurrence: EG)
  Receive Date: 20210127
  Receipt Date: 20210302
  Transmission Date: 20210419
  Serious: Yes (Other)
  Sender: FDA-Public Use
  Company Number: NVSC2021EG013750

PATIENT
  Age: 20 Year
  Sex: Male

DRUGS (4)
  1. COSENTYX [Suspect]
     Active Substance: SECUKINUMAB
     Indication: PSORIASIS
     Dosage: 300 MG, QMO
     Route: 058
     Dates: start: 20180601, end: 202003
  2. COSENTYX [Suspect]
     Active Substance: SECUKINUMAB
     Dosage: 150 MG, Q2W
     Route: 058
     Dates: start: 20201222
  3. COSENTYX [Suspect]
     Active Substance: SECUKINUMAB
     Indication: PSORIATIC ARTHROPATHY
     Dosage: UNK
     Route: 058
     Dates: start: 202009
  4. COSENTYX [Suspect]
     Active Substance: SECUKINUMAB
     Dosage: 150 MG, Q2W
     Route: 058
     Dates: start: 20201203

REACTIONS (6)
  - Psoriasis [Recovering/Resolving]
  - Product prescribing error [Unknown]
  - Pyrexia [Recovered/Resolved]
  - Joint stiffness [Recovering/Resolving]
  - Drug ineffective [Not Recovered/Not Resolved]
  - Depression [Recovering/Resolving]

NARRATIVE: CASE EVENT DATE: 2018
